FAERS Safety Report 9096099 (Version 1)
Quarter: 2013Q1

REPORT INFORMATION
  Report Type: Spontaneous
  Country: US (occurrence: US)
  Receive Date: 20130207
  Receipt Date: 20130207
  Transmission Date: 20140127
  Serious: Yes (Hospitalization)
  Sender: FDA-Public Use
  Company Number: US-BAYER-2013-014439

PATIENT
  Age: 45 Year
  Sex: Female
  Weight: 137.42 kg

DRUGS (10)
  1. BEYAZ [Suspect]
     Indication: MENSTRUAL CYCLE MANAGEMENT
  2. YAZ [Suspect]
  3. ORETIC [Concomitant]
     Dosage: 12.5 MG, DAILY
     Route: 048
     Dates: start: 20110203, end: 20110827
  4. FUROSEMID [FUROSEMIDE] [Concomitant]
     Dosage: 20 MG, UNK
     Route: 048
     Dates: start: 20110331
  5. AMOXICILLIN [Concomitant]
     Dosage: 500 MG, UNK
     Route: 048
     Dates: start: 20110331
  6. ASPIRIN [ACETYLSALICYLIC ACID] [Concomitant]
     Dosage: 325 MG, DAILY
     Route: 048
     Dates: start: 20110617
  7. INTEGRA [Concomitant]
     Dosage: 125 MG, TID
     Route: 048
     Dates: start: 201105, end: 20110617
  8. MICRO-K [Concomitant]
     Dosage: 20 MEQ, DAILY
     Dates: start: 20110617
  9. DIOVAN [VALSARTAN] [Concomitant]
     Dosage: 0.3 TAB DAILY
     Route: 048
     Dates: start: 20110617
  10. BABY ASPIRIN [Concomitant]

REACTIONS (1)
  - Deep vein thrombosis [Recovered/Resolved]
